FAERS Safety Report 13754437 (Version 5)
Quarter: 2024Q1

REPORT INFORMATION
  Report Type: Report from Study
  Country: DE (occurrence: DE)
  Receive Date: 20170714
  Receipt Date: 20240116
  Transmission Date: 20240410
  Serious: Yes (Other)
  Sender: FDA-Public Use
  Company Number: DE-AMGEN-DEUNI2017106045

PATIENT
  Age: 63 Year
  Sex: Male
  Weight: 95 kg

DRUGS (16)
  1. PANITUMUMAB [Suspect]
     Active Substance: PANITUMUMAB
     Indication: Colorectal cancer metastatic
     Dosage: 570 MILLIGRAM
     Route: 042
     Dates: start: 20170523
  2. PANITUMUMAB [Suspect]
     Active Substance: PANITUMUMAB
     Dosage: 284 MILLIGRAM
     Route: 042
     Dates: start: 20170619
  3. PANITUMUMAB [Suspect]
     Active Substance: PANITUMUMAB
     Dosage: 320 MILLIGRAM
     Route: 042
     Dates: start: 20180820
  4. IRINOTECAN [Suspect]
     Active Substance: IRINOTECAN
     Indication: Colorectal cancer metastatic
     Dosage: 252 MILLIGRAM
     Route: 065
     Dates: start: 20170523
  5. LEUCOVORIN [Suspect]
     Active Substance: LEUCOVORIN\LEUCOVORIN CALCIUM
     Indication: Colorectal cancer metastatic
     Dosage: 560 MILLIGRAM
     Route: 065
     Dates: start: 20170523
  6. FLUOROURACIL [Suspect]
     Active Substance: FLUOROURACIL
     Indication: Colorectal cancer metastatic
     Dosage: 800 MILLIGRAM
     Route: 040
     Dates: start: 20170523
  7. FLUOROURACIL [Suspect]
     Active Substance: FLUOROURACIL
     Dosage: 1680 MILLIGRAM
     Route: 042
     Dates: start: 20170523
  8. FLUOROURACIL [Suspect]
     Active Substance: FLUOROURACIL
     Dosage: 560 MILLIGRAM
     Route: 040
     Dates: start: 20170606
  9. FLUOROURACIL [Suspect]
     Active Substance: FLUOROURACIL
     Dosage: 3360 MILLIGRAM
     Route: 042
     Dates: start: 20170606
  10. BISOPROLOL [Concomitant]
     Active Substance: BISOPROLOL\BISOPROLOL FUMARATE
     Indication: Hypertension
     Dosage: 5 MILLIGRAM, BID
     Route: 048
  11. RAMIPRIL [Concomitant]
     Active Substance: RAMIPRIL
     Indication: Hypertension
     Dosage: 5 MILLIGRAM, BID
     Route: 048
  12. ATORVASTATIN [Concomitant]
     Active Substance: ATORVASTATIN
     Indication: Hypercholesterolaemia
     Dosage: 40 MILLIGRAM, QD
     Route: 048
  13. HYDROCHLOROTHIAZIDE [Concomitant]
     Active Substance: HYDROCHLOROTHIAZIDE
     Indication: Hypertension
     Dosage: 5 UNK, QD
     Route: 048
  14. AMLODIPINE BESYLATE [Concomitant]
     Active Substance: AMLODIPINE BESYLATE
     Indication: Hypertension
     Dosage: UNK UNK, QD
     Route: 048
  15. ASPIRIN [Concomitant]
     Active Substance: ASPIRIN
     Indication: Antiplatelet therapy
     Dosage: 100 MILLIGRAM, QD
     Route: 048
  16. PANTOPRAZOLE SODIUM [Concomitant]
     Active Substance: PANTOPRAZOLE SODIUM
     Indication: Dyspepsia
     Dosage: 40 MILLIGRAM, QD
     Route: 048

REACTIONS (2)
  - Leukopenia [Recovered/Resolved]
  - Pustule [Recovered/Resolved]

NARRATIVE: CASE EVENT DATE: 20170606
